FAERS Safety Report 23511292 (Version 2)
Quarter: 2024Q2

REPORT INFORMATION
  Report Type: Report from Study
  Country: US (occurrence: US)
  Receive Date: 20240212
  Receipt Date: 20240404
  Transmission Date: 20240716
  Serious: Yes (Hospitalization, Other)
  Sender: FDA-Public Use
  Company Number: US-SA-SAC20240205000655

PATIENT
  Age: 63 Year
  Sex: Female
  Weight: 103 kg

DRUGS (1)
  1. DUPIXENT [Suspect]
     Active Substance: DUPILUMAB
     Indication: Asthma
     Dosage: 300 MG, QOW
     Route: 058
     Dates: start: 20200410

REACTIONS (6)
  - Lung disorder [Unknown]
  - Bronchitis [Recovering/Resolving]
  - Pneumonia [Recovering/Resolving]
  - Impaired quality of life [Recovering/Resolving]
  - Knee arthroplasty [Unknown]
  - Impaired quality of life [Recovering/Resolving]

NARRATIVE: CASE EVENT DATE: 20240401
